FAERS Safety Report 4730206-3 (Version None)
Quarter: 2005Q3

REPORT INFORMATION
  Report Type: 
  Country: None (occurrence: None)
  Receive Date: 20050801
  Receipt Date: 20050722
  Transmission Date: 20060218
  Serious: Yes (Other)
  Sender: FDA-Public Use
  Company Number: AU-GLAXOSMITHKLINE-B0389160A

PATIENT
  Age: 17 Year
  Sex: Female

DRUGS (6)
  1. LAMICTAL [Suspect]
     Indication: BIPOLAR DISORDER
  2. QUETIAPINE [Concomitant]
     Indication: DRUG USE FOR UNKNOWN INDICATION
  3. CHLORPROMAZINE HCL [Concomitant]
     Indication: DRUG USE FOR UNKNOWN INDICATION
  4. LITHIUM [Concomitant]
     Indication: DRUG USE FOR UNKNOWN INDICATION
  5. VALPROATE [Concomitant]
     Indication: DRUG USE FOR UNKNOWN INDICATION
  6. BIPERIDEN HYDROCHLORIDE TAB [Concomitant]
     Indication: DRUG USE FOR UNKNOWN INDICATION

REACTIONS (3)
  - RETINOPATHY [None]
  - TOXIC EPIDERMAL NECROLYSIS [None]
  - VISION BLURRED [None]
